FAERS Safety Report 11050893 (Version 1)
Quarter: 2015Q2

REPORT INFORMATION
  Report Type: Spontaneous
  Country: US (occurrence: None)
  Receive Date: 20150420
  Receipt Date: 20150420
  Transmission Date: 20150821
  Serious: No
  Sender: FDA-Public Use
  Company Number: None

PATIENT
  Age: 4 Year
  Sex: Male

DRUGS (2)
  1. MIRALAX [Suspect]
     Active Substance: POLYETHYLENE GLYCOL 3350
     Indication: ANAL FISSURE
     Dates: start: 20040101, end: 20050101
  2. MIRALAX [Suspect]
     Active Substance: POLYETHYLENE GLYCOL 3350
     Indication: CONSTIPATION
     Dates: start: 20040101, end: 20050101

REACTIONS (5)
  - Disturbance in attention [None]
  - Memory impairment [None]
  - Autism [None]
  - Abnormal behaviour [None]
  - Sensory disturbance [None]

NARRATIVE: CASE EVENT DATE: 20050101
